FAERS Safety Report 12552998 (Version 3)
Quarter: 2016Q3

REPORT INFORMATION
  Report Type: Report from Study
  Country: US (occurrence: US)
  Receive Date: 20160713
  Receipt Date: 20160721
  Transmission Date: 20161109
  Serious: Yes (Death, Hospitalization)
  Sender: FDA-Public Use
  Company Number: US-ACTELION-A-NJ2016-139036

PATIENT
  Age: 74 Year
  Sex: Female
  Weight: 50 kg

DRUGS (1)
  1. OPSUMIT [Suspect]
     Active Substance: MACITENTAN
     Indication: PULMONARY ARTERIAL HYPERTENSION
     Dosage: 10 MG, QD
     Route: 048
     Dates: start: 20150225, end: 20160707

REACTIONS (14)
  - Open reduction of fracture [Unknown]
  - Endotracheal intubation [Unknown]
  - Hip fracture [Unknown]
  - Unresponsive to stimuli [Unknown]
  - Pneumonia klebsiella [Unknown]
  - Lower respiratory tract infection [Unknown]
  - Sleep apnoea syndrome [Unknown]
  - Pain [Unknown]
  - Death [Fatal]
  - Chronic obstructive pulmonary disease [Unknown]
  - Lethargy [Unknown]
  - Respiratory failure [Unknown]
  - Fall [Unknown]
  - Acute kidney injury [Unknown]

NARRATIVE: CASE EVENT DATE: 20160707
